FAERS Safety Report 10010835 (Version 7)
Quarter: 2016Q3

REPORT INFORMATION
  Report Type: Report from Study
  Country: US (occurrence: US)
  Receive Date: 20140314
  Receipt Date: 20160922
  Transmission Date: 20161108
  Serious: Yes (Other)
  Sender: FDA-Public Use
  Company Number: US-ROCHE-1359891

PATIENT

DRUGS (2)
  1. BEVACIZUMAB [Suspect]
     Active Substance: BEVACIZUMAB
     Indication: METASTATIC RENAL CELL CARCINOMA
     Route: 065
  2. CRLX101 [Suspect]
     Active Substance: INVESTIGATIONAL PRODUCT
     Indication: METASTATIC RENAL CELL CARCINOMA
     Dosage: 12 MG/M2, 15 MG/M2: IN A STANDARD 3+3 DESIGN WITH AN EXPANSION AT THE RP2D
     Route: 065

REACTIONS (13)
  - Abdominal pain [Unknown]
  - Nausea [Unknown]
  - Fatigue [Unknown]
  - Dental caries [Unknown]
  - Oedema [Unknown]
  - Diarrhoea [Unknown]
  - Cystitis noninfective [Unknown]
  - Hypertension [Unknown]
  - Anaemia [Unknown]
  - Vomiting [Unknown]
  - Dizziness [Unknown]
  - Dehydration [Unknown]
  - Neutropenia [Unknown]
